FAERS Safety Report 16232742 (Version 2)
Quarter: 2019Q3

REPORT INFORMATION
  Report Type: Spontaneous
  Country: JP (occurrence: JP)
  Receive Date: 20190424
  Receipt Date: 20190705
  Transmission Date: 20191004
  Serious: Yes (Life-Threatening, Hospitalization, Other)
  Sender: FDA-Public Use
  Company Number: JP-BAYER-2019-079336

PATIENT
  Age: 46 Year
  Sex: Female
  Weight: 50.4 kg

DRUGS (12)
  1. ALLERMIST [Concomitant]
     Active Substance: FLUTICASONE FUROATE
     Indication: RHINITIS
     Dosage: SPRAY TWICE A DAY
     Route: 045
     Dates: start: 20170313
  2. PATANOL [Concomitant]
     Active Substance: OLOPATADINE HYDROCHLORIDE
     Indication: RHINITIS
     Dosage: 4 TIMES A DAY
     Route: 047
     Dates: start: 20170313
  3. KENACORT-A [TRIAMCINOLONE ACETONIDE] [Concomitant]
     Dosage: UNK
     Dates: start: 20190312
  4. KIPRES [Concomitant]
     Active Substance: MONTELUKAST SODIUM
     Indication: RHINITIS
     Dosage: DAILY DOSE 10 MG
     Route: 048
     Dates: start: 20170313
  5. YAZ [Suspect]
     Active Substance: DROSPIRENONE\ETHINYL ESTRADIOL
     Indication: DYSMENORRHOEA
     Dosage: DAILY DOSE 1 DF
     Route: 048
     Dates: start: 20160808, end: 20180208
  6. YAZ [Suspect]
     Active Substance: DROSPIRENONE\ETHINYL ESTRADIOL
     Indication: DYSMENORRHOEA
     Dosage: DAILY DOSE 1 DF
     Route: 048
     Dates: start: 201803, end: 201903
  7. STIBRON [Concomitant]
     Indication: PRURITUS
     Dosage: UNK, PRN
     Route: 061
     Dates: start: 20160825
  8. BUPIVACAINE HYDROCHLORIDE. [Concomitant]
     Active Substance: BUPIVACAINE HYDROCHLORIDE
     Indication: SPINAL ANAESTHESIA
     Dosage: UNK
     Dates: start: 20190301
  9. TALION [BEPOTASTINE BESILATE] [Concomitant]
     Active Substance: BEPOTASTINE BESYLATE
     Indication: RHINITIS
     Dosage: DAILY DOSE 20 MG
     Route: 048
     Dates: start: 20170313
  10. EPERISONE HYDROCHLORIDE [Concomitant]
     Active Substance: EPERISONE HYDROCHLORIDE
     Indication: NECK PAIN
     Dosage: DAILY DOSE 150 MG
     Route: 048
     Dates: start: 20170216
  11. DICLOFENAC NA [Concomitant]
     Active Substance: DICLOFENAC SODIUM
     Indication: DYSMENORRHOEA
     Dosage: UNK, PRN
     Route: 048
     Dates: start: 20160707, end: 20190509
  12. XYLOCAINE [Concomitant]
     Active Substance: LIDOCAINE HYDROCHLORIDE
     Dosage: UNK
     Dates: start: 20190312

REACTIONS (18)
  - Feeling cold [Recovered/Resolved]
  - Mobility decreased [None]
  - Loss of consciousness [Recovered/Resolved]
  - Meniscus removal [None]
  - Contraindicated product administered [None]
  - Medication error [None]
  - Intracranial hypotension [None]
  - Nausea [None]
  - Headache [None]
  - Dyspnoea [Recovered/Resolved]
  - Dizziness postural [Recovered/Resolved]
  - Chest pain [Recovered/Resolved]
  - Shock [Recovered/Resolved]
  - Product monitoring error [None]
  - Dehydration [None]
  - Cold sweat [None]
  - Deep vein thrombosis [Recovered/Resolved]
  - Pulmonary embolism [Recovered/Resolved]

NARRATIVE: CASE EVENT DATE: 201903
